FAERS Safety Report 4948548-5 (Version None)
Quarter: 2006Q1

REPORT INFORMATION
  Report Type: 
  Country: None (occurrence: None)
  Receive Date: 20060320
  Receipt Date: 20041101
  Transmission Date: 20060701
  Serious: Yes (Hospitalization, Disabling)
  Sender: FDA-Public Use
  Company Number: US-MERCK-0411USA00159

PATIENT
  Age: 73 Year
  Sex: Male

DRUGS (2)
  1. VIOXX [Suspect]
     Indication: PAIN
     Route: 048
     Dates: start: 20001101, end: 20040920
  2. VIOXX [Suspect]
     Indication: SPINAL COLUMN STENOSIS
     Route: 048
     Dates: start: 20001101, end: 20040920

REACTIONS (9)
  - ARTERIOSCLEROSIS CORONARY ARTERY [None]
  - GLOSSODYNIA [None]
  - HYPERSOMNIA [None]
  - IMPAIRED HEALING [None]
  - MYOCARDIAL INFARCTION [None]
  - NIGHTMARE [None]
  - ORAL PAIN [None]
  - SICK SINUS SYNDROME [None]
  - VENTRICULAR TACHYCARDIA [None]
